FAERS Safety Report 6445658-0 (Version None)
Quarter: 2009Q4

REPORT INFORMATION
  Report Type: 
  Country: None (occurrence: None)
  Receive Date: 20091118
  Receipt Date: 20091118
  Transmission Date: 20100525
  Serious: Yes (Hospitalization)
  Sender: FDA-Public Use
  Company Number: None

PATIENT
  Age: 42 Year
  Sex: Female
  Weight: 62.5964 kg

DRUGS (2)
  1. MAXALT [Suspect]
  2. LEXAPRO [Suspect]

REACTIONS (4)
  - BLOOD PRESSURE INCREASED [None]
  - MYOCLONUS [None]
  - SEROTONIN SYNDROME [None]
  - UNRESPONSIVE TO STIMULI [None]
